FAERS Safety Report 8300598-7 (Version None)
Quarter: 2012Q2

REPORT INFORMATION
  Report Type: 
  Country: None (occurrence: None)
  Receive Date: 20120420
  Receipt Date: 20120410
  Transmission Date: 20120825
  Serious: Yes (Other)
  Sender: FDA-Public Use
  Company Number: PHHY2011KR111886

PATIENT
  Sex: Female
  Weight: 55 kg

DRUGS (2)
  1. EXJADE [Suspect]
     Indication: IRON OVERLOAD
     Dosage: 500 MG, DAILY
     Route: 048
     Dates: start: 20100414
  2. EXJADE [Suspect]
     Indication: ACUTE LYMPHOCYTIC LEUKAEMIA

REACTIONS (6)
  - HAEMATURIA [None]
  - SERUM FERRITIN ABNORMAL [None]
  - PROTEINURIA [None]
  - GRAFT VERSUS HOST DISEASE [None]
  - ASTHENIA [None]
  - RENAL FUNCTION TEST ABNORMAL [None]
